FAERS Safety Report 12144091 (Version 2)
Quarter: 2016Q1

REPORT INFORMATION
  Report Type: Spontaneous
  Country: US (occurrence: US)
  Receive Date: 20160304
  Receipt Date: 20160311
  Transmission Date: 20160526
  Serious: Yes (Other)
  Sender: FDA-Public Use
  Company Number: US-BEH-2016059321

PATIENT
  Sex: Female
  Weight: 74 kg

DRUGS (15)
  1. HYDROXYCHLOROQUINE [Concomitant]
     Active Substance: HYDROXYCHLOROQUINE
  2. ACETAMINOPHEN. [Concomitant]
     Active Substance: ACETAMINOPHEN
  3. CALCIUM [Concomitant]
     Active Substance: CALCIUM
  4. HIZENTRA [Suspect]
     Active Substance: HUMAN IMMUNOGLOBULIN G
     Dosage: 10 GM 50 ML VIALS
     Route: 058
     Dates: start: 20150128
  5. PROVENTIL [Concomitant]
     Active Substance: ALBUTEROL
  6. IBUPROFEN. [Concomitant]
     Active Substance: IBUPROFEN
  7. HIZENTRA [Suspect]
     Active Substance: HUMAN IMMUNOGLOBULIN G
     Indication: HYPOGAMMAGLOBULINAEMIA
     Dosage: 1 GM 5 ML VIAL
     Route: 058
     Dates: start: 20150128
  8. EPIPEN [Concomitant]
     Active Substance: EPINEPHRINE
  9. VITAMIN D [Concomitant]
     Active Substance: CHOLECALCIFEROL
  10. DIPHENHYDRAMINE. [Concomitant]
     Active Substance: DIPHENHYDRAMINE
  11. CYCLOBENZAPRINE [Concomitant]
     Active Substance: CYCLOBENZAPRINE
  12. MULTIVITAMINS [Concomitant]
     Active Substance: VITAMINS
  13. FOLIC ACID. [Concomitant]
     Active Substance: FOLIC ACID
  14. TYLENOL [Concomitant]
     Active Substance: ACETAMINOPHEN
  15. ONDANSETRON [Concomitant]
     Active Substance: ONDANSETRON

REACTIONS (2)
  - Respiratory tract congestion [Unknown]
  - Nasopharyngitis [Unknown]
